FAERS Safety Report 8272730-5 (Version None)
Quarter: 2012Q2

REPORT INFORMATION
  Report Type: 
  Country: None (occurrence: None)
  Receive Date: 20120411
  Receipt Date: 20120308
  Transmission Date: 20120825
  Serious: Yes (Other)
  Sender: FDA-Public Use
  Company Number: NL-BAXTER-2012BH007240

PATIENT
  Sex: Female
  Weight: 74 kg

DRUGS (19)
  1. CETIRIZINE [Concomitant]
     Route: 048
     Dates: start: 20120112
  2. MORPHINE SULFATE RETARD [Concomitant]
     Route: 048
     Dates: start: 20120112
  3. ACETAMINOPHEN [Concomitant]
     Route: 048
  4. METHOTREXATE [Concomitant]
     Route: 048
     Dates: start: 20080428
  5. IMMUNE GLOBULIN (HUMAN) [Suspect]
     Indication: MULTIPLE MYELOMA
     Route: 058
     Dates: start: 20120228, end: 20120228
  6. FOLIC ACID [Concomitant]
     Route: 048
     Dates: start: 20061005
  7. PLAQUENIL [Concomitant]
     Route: 048
     Dates: start: 20100301
  8. CLARITHROMYCIN [Concomitant]
     Route: 048
     Dates: start: 20100923
  9. ZOLPIDEM TARTRATE [Concomitant]
     Route: 048
     Dates: start: 20100624
  10. IMMUNE GLOBULIN (HUMAN) [Suspect]
  11. COLISTIN SULFATE [Concomitant]
     Dates: start: 20120112
  12. POLYETHYLENE GLYCOL [Concomitant]
     Route: 048
     Dates: start: 20120112
  13. FLUTICASONE PROPIONATE/SALMETEROL [Concomitant]
     Dates: start: 20100624
  14. SELOKEEN [Concomitant]
     Route: 048
     Dates: start: 20120112
  15. OFLOXACIN [Concomitant]
     Route: 048
     Dates: start: 20110414
  16. OXAZEPAM [Concomitant]
     Route: 048
     Dates: start: 20120112
  17. IMMUNE GLOBULIN (HUMAN) [Suspect]
     Route: 058
     Dates: start: 20120216, end: 20120216
  18. FLUCONAZOLE [Concomitant]
     Route: 048
     Dates: start: 20120112
  19. VALACYCLOVIR HYDROCHLORIDE [Concomitant]
     Route: 048
     Dates: start: 20100624

REACTIONS (1)
  - HYPERSENSITIVITY [None]
